FAERS Safety Report 18450813 (Version 1)
Quarter: 2020Q4

REPORT INFORMATION
  Report Type: Spontaneous
  Country: US (occurrence: US)
  Receive Date: 20201102
  Receipt Date: 20201102
  Transmission Date: 20210114
  Serious: Yes (Life-Threatening, Hospitalization, Other)
  Sender: FDA-Public Use
  Company Number: US-GLENMARK PHARMACEUTICALS-2020GMK050225

PATIENT
  Age: 67 Year
  Sex: Male

DRUGS (3)
  1. TACROLIMUS. [Suspect]
     Active Substance: TACROLIMUS
     Dosage: UNK (RESTARTED)
     Route: 065
  2. TACROLIMUS. [Suspect]
     Active Substance: TACROLIMUS
     Indication: PRODUCT USED FOR UNKNOWN INDICATION
     Dosage: UNK
     Route: 065
  3. MORPHINE SULFATE. [Suspect]
     Active Substance: MORPHINE SULFATE
     Indication: ARTHRALGIA
     Route: 065

REACTIONS (5)
  - Seizure [Recovered/Resolved]
  - Toxicity to various agents [Recovering/Resolving]
  - Status epilepticus [Recovering/Resolving]
  - Encephalopathy [Recovering/Resolving]
  - Neurotoxicity [Recovering/Resolving]
